FAERS Safety Report 9913287 (Version 1)
Quarter: 2014Q1

REPORT INFORMATION
  Report Type: Spontaneous
  Country: US (occurrence: None)
  Receive Date: 20140214
  Receipt Date: 20140214
  Transmission Date: 20141002
  Serious: Yes (Hospitalization)
  Sender: FDA-Public Use
  Company Number: 2014AP001132

PATIENT
  Age: 86 Year
  Sex: Female

DRUGS (2)
  1. PAROXETINE HCL TABLETS [Suspect]
  2. WARFARIN SODIUM [Suspect]

REACTIONS (1)
  - Memory impairment [None]
